FAERS Safety Report 4866786-7 (Version None)
Quarter: 2005Q4

REPORT INFORMATION
  Report Type: 
  Country: None (occurrence: None)
  Receive Date: 20051222
  Receipt Date: 20051207
  Transmission Date: 20060501
  Serious: Yes (Hospitalization)
  Sender: FDA-Public Use
  Company Number: IMP_1967_2005

PATIENT
  Age: 37 Year
  Sex: Male

DRUGS (1)
  1. MINOCYCLINE HCL [Suspect]
     Indication: RASH
     Dosage: DF

REACTIONS (12)
  - CHEST PAIN [None]
  - DIARRHOEA [None]
  - DYSPNOEA [None]
  - EOSINOPHILIA [None]
  - HAEMODYNAMIC INSTABILITY [None]
  - HYPOXIA [None]
  - MULTI-ORGAN FAILURE [None]
  - PERICARDIAL HAEMORRHAGE [None]
  - PYREXIA [None]
  - RESPIRATORY FAILURE [None]
  - TACHYPNOEA [None]
  - WHITE BLOOD CELL COUNT INCREASED [None]
